FAERS Safety Report 6799009-2 (Version None)
Quarter: 2010Q2

REPORT INFORMATION
  Report Type: 
  Country: None (occurrence: None)
  Receive Date: 20100623
  Receipt Date: 20100617
  Transmission Date: 20101027
  Serious: No
  Sender: FDA-Public Use
  Company Number: A0865750A

PATIENT
  Age: 24 Month
  Sex: Female

DRUGS (1)
  1. CAMPHOR + MENTHOL LOTION (CAMPHOR + MENTHOL) [Suspect]
     Indication: ACCIDENTAL EXPOSURE
     Dosage: SINGLE DOSE / ORAL
     Route: 048
     Dates: start: 20100617, end: 20100617

REACTIONS (1)
  - ACCIDENTAL DRUG INTAKE BY CHILD [None]
